FAERS Safety Report 4775356-0 (Version None)
Quarter: 2005Q3

REPORT INFORMATION
  Report Type: 
  Country: None (occurrence: None)
  Receive Date: 20050920
  Receipt Date: 20050907
  Transmission Date: 20060218
  Serious: Yes (Death)
  Sender: FDA-Public Use
  Company Number: DSA_26537_2005

PATIENT
  Sex: Male

DRUGS (3)
  1. CARDIZEM LA [Suspect]
     Indication: CARDIAC DISORDER
     Dosage: 180 MG Q DAY
  2. OXYGEN [Concomitant]
  3. ALBUTEROL [Concomitant]

REACTIONS (3)
  - DYSPNOEA [None]
  - FATIGUE [None]
  - GENERAL PHYSICAL HEALTH DETERIORATION [None]
